FAERS Safety Report 4402841-3 (Version None)
Quarter: 2004Q3

REPORT INFORMATION
  Report Type: 
  Country: None (occurrence: None)
  Receive Date: 20040720
  Receipt Date: 20040720
  Transmission Date: 20050211
  Serious: Yes (Other)
  Sender: FDA-Public Use
  Company Number: None

PATIENT
  Age: 38 Year
  Sex: Female
  Weight: 64.8644 kg

DRUGS (2)
  1. VALIUM [Suspect]
     Dosage: 10-15 MG PO Q HS
     Route: 048
  2. VALIUM [Suspect]
     Dosage: 10-20 MG PO Q HS
     Route: 048

REACTIONS (7)
  - DIARRHOEA [None]
  - GLOSSODYNIA [None]
  - HEADACHE [None]
  - MUSCLE CRAMP [None]
  - NAUSEA [None]
  - PHARMACEUTICAL PRODUCT COMPLAINT [None]
  - THROAT IRRITATION [None]
